FAERS Safety Report 7919124-7 (Version None)
Quarter: 2011Q4

REPORT INFORMATION
  Report Type: 
  Country: None (occurrence: None)
  Receive Date: 20111116
  Receipt Date: 20110812
  Transmission Date: 20120403
  Serious: Yes (Other)
  Sender: FDA-Public Use
  Company Number: PHHY2011US73130

PATIENT
  Age: 35 Year
  Sex: Female

DRUGS (7)
  1. THYMOGLOBULIN [Suspect]
     Indication: RENAL FAILURE CHRONIC
     Dosage: 1.5 MG/KG, QD
  2. CYCLOSPORINE [Concomitant]
  3. MYCOPHENOLIC ACID [Suspect]
     Indication: RENAL FAILURE CHRONIC
     Dosage: 720 MG, BID
  4. METHYLPREDNISOLONE [Suspect]
     Indication: RENAL FAILURE CHRONIC
     Route: 042
  5. SIROLIMUS [Suspect]
     Dosage: 5 MG, UNK
  6. TACROLIMUS [Suspect]
     Indication: RENAL FAILURE CHRONIC
     Dosage: 0.05 MG/KG, BID
  7. SIROLIMUS [Suspect]
     Dosage: 10 MG, UNK

REACTIONS (5)
  - GLOMERULONEPHRITIS [None]
  - LUPUS NEPHRITIS [None]
  - PROTEINURIA [None]
  - THROMBOTIC MICROANGIOPATHY [None]
  - DRUG LEVEL BELOW THERAPEUTIC [None]
